FAERS Safety Report 9304911 (Version 1)
Quarter: 2013Q2

REPORT INFORMATION
  Report Type: Spontaneous
  Country: US (occurrence: None)
  Receive Date: 20130521
  Receipt Date: 20130521
  Transmission Date: 20140414
  Serious: Yes (Life-Threatening, Hospitalization, Other)
  Sender: FDA-Public Use
  Company Number: None

PATIENT
  Age: 71 Year
  Sex: Female
  Weight: 53.07 kg

DRUGS (12)
  1. ZYVOX [Suspect]
     Route: 048
  2. METHOTREXATE [Suspect]
     Dosage: 4 TABS WEEKLY
     Route: 048
  3. ALPRAZOLAM [Concomitant]
  4. LASIX [Concomitant]
  5. VITAMIN B-12 [Concomitant]
  6. IMDUR [Concomitant]
  7. POTASSIUM [Concomitant]
  8. LEXAPRO [Concomitant]
  9. FOLIC ACID [Concomitant]
  10. NORVASC [Concomitant]
  11. PANTOPRAZOLE [Concomitant]
  12. VITAMIN D3 [Concomitant]

REACTIONS (11)
  - Urinary tract infection [None]
  - Memory impairment [None]
  - Weight decreased [None]
  - Enterococcal infection [None]
  - Diarrhoea haemorrhagic [None]
  - Haemorrhoids [None]
  - Contusion [None]
  - Gingival bleeding [None]
  - Lip haemorrhage [None]
  - Pancytopenia [None]
  - Potentiating drug interaction [None]
